FAERS Safety Report 21388827 (Version 1)
Quarter: 2022Q3

REPORT INFORMATION
  Report Type: Spontaneous
  Country: US (occurrence: None)
  Receive Date: 20220927
  Receipt Date: 20220927
  Transmission Date: 20221026
  Serious: Yes (Hospitalization)
  Sender: FDA-Public Use
  Company Number: None

PATIENT
  Age: 85 Year
  Sex: Male
  Weight: 101.6 kg

DRUGS (19)
  1. ABIRATERONE [Suspect]
     Active Substance: ABIRATERONE
     Indication: Prostate cancer
     Dosage: 250MG ONCE DAIILY ORAL
     Route: 048
     Dates: start: 202007, end: 20220926
  2. CALTRATE [Concomitant]
     Active Substance: CALCIUM CARBONATE
  3. COLACE [Concomitant]
     Active Substance: DOCUSATE SODIUM
  4. CYCLOBENZAPRINE [Concomitant]
     Active Substance: CYCLOBENZAPRINE
  5. DEXAMETHASONE [Concomitant]
     Active Substance: DEXAMETHASONE
  6. DILAUDID [Concomitant]
     Active Substance: HYDROMORPHONE HYDROCHLORIDE
  7. DULCOLAX NOS [Concomitant]
     Active Substance: BISACODYL OR DOCUSATE SODIUM
  8. ELIQUIS [Concomitant]
     Active Substance: APIXABAN
  9. LATANOPROST [Concomitant]
     Active Substance: LATANOPROST
  10. LOSARTAN POTASSIUM [Concomitant]
     Active Substance: LOSARTAN POTASSIUM
  11. LYRICA [Concomitant]
     Active Substance: PREGABALIN
  12. MELATONIN [Concomitant]
     Active Substance: MELATONIN
  13. METOPROLOL [Concomitant]
     Active Substance: METOPROLOL
  14. ONDANSETRON [Concomitant]
     Active Substance: ONDANSETRON
  15. POLYETHLYENE [Concomitant]
  16. PREDNISONE [Concomitant]
     Active Substance: PREDNISONE
  17. SIENNA [Concomitant]
  18. TIMOLOL [Concomitant]
     Active Substance: TIMOLOL
  19. TYLENOL [Concomitant]
     Active Substance: ACETAMINOPHEN

REACTIONS (1)
  - Hospice care [None]
